FAERS Safety Report 20297758 (Version 1)
Quarter: 2022Q1

REPORT INFORMATION
  Report Type: Spontaneous
  Country: US (occurrence: None)
  Receive Date: 20220105
  Receipt Date: 20220105
  Transmission Date: 20220424
  Serious: Yes (Other)
  Sender: FDA-Public Use
  Company Number: US-ROCHE-2799522

PATIENT
  Sex: Female

DRUGS (5)
  1. ACTIVASE [Suspect]
     Active Substance: ALTEPLASE
     Indication: Product used for unknown indication
     Route: 042
     Dates: start: 20210323
  2. ACTIVASE [Suspect]
     Active Substance: ALTEPLASE
  3. HERCEPTIN [Suspect]
     Active Substance: TRASTUZUMAB
     Indication: Breast cancer
     Dosage: WEEKLY FOR 3 MONTHS
     Route: 065
  4. HERCEPTIN [Suspect]
     Active Substance: TRASTUZUMAB
     Dosage: 3 SINGLE 6MG DOSES
     Route: 065
  5. TAXOL [Concomitant]
     Active Substance: PACLITAXEL
     Dosage: STARTING LAST OCTOBER

REACTIONS (3)
  - Anaphylactic reaction [Unknown]
  - Eye swelling [Unknown]
  - Pyrexia [Unknown]
